FAERS Safety Report 18321612 (Version 1)
Quarter: 2020Q3

REPORT INFORMATION
  Report Type: Spontaneous
  Country: LV (occurrence: LV)
  Receive Date: 20200928
  Receipt Date: 20200928
  Transmission Date: 20201103
  Serious: Yes (Other)
  Sender: FDA-Public Use
  Company Number: LV-BAYER-2020-173694

PATIENT
  Age: 36 Year
  Sex: Female

DRUGS (1)
  1. FLEREE [Suspect]
     Active Substance: LEVONORGESTREL
     Indication: CONTRACEPTION
     Dosage: UNK
     Route: 015
     Dates: start: 20181204, end: 20200807

REACTIONS (4)
  - Decreased embryo viability [None]
  - Drug ineffective [None]
  - Menstruation irregular [None]
  - Pregnancy with contraceptive device [None]

NARRATIVE: CASE EVENT DATE: 202006
